FAERS Safety Report 23420933 (Version 2)
Quarter: 2024Q1

REPORT INFORMATION
  Report Type: Report from Study
  Country: CN (occurrence: CN)
  Receive Date: 20240119
  Receipt Date: 20240207
  Transmission Date: 20240409
  Serious: Yes (Death, Hospitalization)
  Sender: FDA-Public Use
  Company Number: CN-JNJFOC-20240138447

PATIENT

DRUGS (6)
  1. BOSENTAN [Suspect]
     Active Substance: BOSENTAN
     Indication: Pulmonary arterial hypertension
     Route: 048
  2. OPSUMIT [Suspect]
     Active Substance: MACITENTAN
     Indication: Pulmonary arterial hypertension
     Route: 048
  3. VELETRI [Suspect]
     Active Substance: EPOPROSTENOL
     Indication: Pulmonary arterial hypertension
     Route: 042
  4. AMBRISENTAN [Concomitant]
     Active Substance: AMBRISENTAN
  5. SILDENAFIL [Concomitant]
     Active Substance: SILDENAFIL
  6. ILOPROST [Concomitant]
     Active Substance: ILOPROST

REACTIONS (1)
  - Liver injury [Fatal]
